FAERS Safety Report 8017027-3 (Version None)
Quarter: 2012Q1

REPORT INFORMATION
  Report Type: 
  Country: None (occurrence: None)
  Receive Date: 20120102
  Receipt Date: 20111228
  Transmission Date: 20120608
  Serious: Yes (Other)
  Sender: FDA-Public Use
  Company Number: PHEH2011US012609

PATIENT
  Sex: Female

DRUGS (3)
  1. ABELCET [Suspect]
     Dates: start: 20110101
  2. SODIUM CHLORIDE CONCENTRATED INJ [Concomitant]
  3. TOBI [Suspect]
     Dosage: 1 DF, QD

REACTIONS (1)
  - OBSTRUCTIVE AIRWAYS DISORDER [None]
